FAERS Safety Report 4679786-7 (Version None)
Quarter: 2005Q2

REPORT INFORMATION
  Report Type: 
  Country: None (occurrence: None)
  Receive Date: 20050602
  Receipt Date: 20050223
  Transmission Date: 20051028
  Serious: Yes (Hospitalization, Other)
  Sender: FDA-Public Use
  Company Number: PHBS2005BE02995

PATIENT
  Age: 71 Year
  Sex: Female

DRUGS (14)
  1. ZOMETA [Suspect]
     Indication: MULTIPLE MYELOMA
     Route: 042
     Dates: start: 20030101, end: 20041201
  2. FOLIC ACID [Concomitant]
     Route: 065
  3. ASAFLOW [Concomitant]
     Route: 065
  4. ZANTAC [Concomitant]
     Route: 065
  5. FERRO-GRAD [Concomitant]
     Route: 065
  6. LORMETAZEPAM [Concomitant]
     Route: 065
  7. SOTALOL HCL [Concomitant]
     Route: 065
  8. AREDIA [Suspect]
     Indication: MULTIPLE MYELOMA
     Route: 042
     Dates: start: 20020801, end: 20021201
  9. VINCRISTINE + ADRIAMYCIN + DEXAMETHASONE [Concomitant]
     Dosage: 7 REGIMENS
     Route: 065
     Dates: start: 20020901
  10. CYCLOPHOSPHAMIDE [Concomitant]
     Dosage: 1 REGIMENT OF CAD
     Route: 065
     Dates: start: 20030401
  11. ADRIAMYCIN PFS [Concomitant]
     Dosage: 1 REGIMENT OF CAD
     Route: 065
     Dates: start: 20030401
  12. DEXAMETHASONE [Concomitant]
     Dosage: 1 REGIMENT OF CAD
     Route: 065
     Dates: start: 20030401
  13. BONE MARROW TRANSPLANT [Concomitant]
     Dosage: STEM CELL COLLECTION
     Route: 065
     Dates: start: 20030401
  14. BONE MARROW TRANSPLANT [Concomitant]
     Dosage: AUTOLOGOUS STEM CELL TRANSPLANT
     Route: 065
     Dates: start: 20030901

REACTIONS (7)
  - ASEPTIC NECROSIS BONE [None]
  - OSTEONECROSIS [None]
  - PRIMARY SEQUESTRUM [None]
  - STEM CELL TRANSPLANT [None]
  - SWELLING [None]
  - TOOTH EXTRACTION [None]
  - WOUND DEBRIDEMENT [None]
